FAERS Safety Report 6044126-8 (Version None)
Quarter: 2009Q1

REPORT INFORMATION
  Report Type: 
  Country: None (occurrence: None)
  Receive Date: 20090120
  Receipt Date: 20090115
  Transmission Date: 20090719
  Serious: Yes (Death)
  Sender: FDA-Public Use
  Company Number: US-BRISTOL-MYERS SQUIBB COMPANY-14472823

PATIENT
  Age: 67 Year
  Sex: Female

DRUGS (7)
  1. BUSPIRONE HCL [Suspect]
     Route: 048
  2. ALPRAZOLAM [Suspect]
     Route: 048
  3. ATORVASTATIN [Suspect]
     Route: 048
  4. TRAMADOL HCL [Suspect]
     Route: 048
  5. VENLAFAXINE HCL [Suspect]
     Route: 048
  6. NITRATE [Suspect]
     Route: 048
  7. DILTIAZEM HCL [Suspect]
     Route: 048

REACTIONS (1)
  - COMPLETED SUICIDE [None]
